FAERS Safety Report 8375517-8 (Version None)
Quarter: 2012Q1

REPORT INFORMATION
  Report Type: 
  Country: None (occurrence: None)
  Receive Date: 20120323
  Receipt Date: 20110405
  Transmission Date: 20120608
  Serious: Yes (Hospitalization, Other)
  Sender: FDA-Public Use
  Company Number: 163-21880-11023018

PATIENT
  Age: 91 Year
  Sex: Female
  Weight: 53.5244 kg

DRUGS (10)
  1. LISINOPRIL (LISINOPRIL) (10 MILLIGRAM, TABLETS) [Concomitant]
  2. CLOPIDOGREL (CLOPIDOGREL) (75 MILLIGRAM, TABLETS) [Concomitant]
  3. ASPIRIN [Concomitant]
  4. OCUVITE (OCUVITE) (TABLETS) [Concomitant]
  5. VITAMIN E (TOCOPHEROL) (400 IU (INTERNATIONAL UNIT), CAPSULES) [Concomitant]
  6. METOCLOPRAMIDE HCL (METOCLOPRAMIDE HYDROCHLORIDE) (5 MILLIGRAM/MILLILI [Concomitant]
  7. REVLIMID [Suspect]
     Indication: MYELODYSPLASTIC SYNDROME
     Dosage: 5 MG, 1 IN 1 D, PO
     Route: 048
     Dates: start: 20091001, end: 20110124
  8. BENADRYL (DIPHENHYDRAMINE HYDROCHLORIDE) (25 MILLIGRAM, CAPSULES) [Concomitant]
  9. LANSOPRAZOLE [Concomitant]
  10. LEVOTHYROXINE (LEVOTHYROXINE) (75 MICROGRAM, TABLETS) [Concomitant]

REACTIONS (4)
  - WHITE BLOOD CELL COUNT INCREASED [None]
  - BLOOD PRESSURE SYSTOLIC INCREASED [None]
  - FATIGUE [None]
  - PNEUMONIA [None]
